FAERS Safety Report 8476882-3 (Version None)
Quarter: 2012Q2

REPORT INFORMATION
  Report Type: 
  Country: None (occurrence: None)
  Receive Date: 20120629
  Receipt Date: 20120620
  Transmission Date: 20120825
  Serious: No
  Sender: FDA-Public Use
  Company Number: US-BIOGENIDEC-2011BI017128

PATIENT
  Age: 32 Year
  Sex: Female

DRUGS (4)
  1. AVONEX [Concomitant]
     Indication: MULTIPLE SCLEROSIS
     Route: 030
     Dates: start: 20080627
  2. TYSABRI [Suspect]
     Indication: MULTIPLE SCLEROSIS
     Route: 042
     Dates: start: 20100518
  3. BENADRYL [Concomitant]
     Indication: PREMEDICATION
  4. ZYRTEC [Concomitant]
     Indication: PREMEDICATION

REACTIONS (4)
  - CONTRAST MEDIA ALLERGY [None]
  - HYPERSENSITIVITY [None]
  - INFUSION RELATED REACTION [None]
  - WEIGHT INCREASED [None]
